FAERS Safety Report 7460391-4 (Version None)
Quarter: 2011Q2

REPORT INFORMATION
  Report Type: 
  Country: None (occurrence: None)
  Receive Date: 20110505
  Receipt Date: 20110428
  Transmission Date: 20111010
  Serious: Yes (Disabling)
  Sender: FDA-Public Use
  Company Number: A0924934A

PATIENT
  Age: 47 Year
  Sex: Male

DRUGS (6)
  1. LAMICTAL [Suspect]
     Indication: BIPOLAR DISORDER
     Dosage: 200MG PER DAY
     Route: 048
     Dates: start: 20100601
  2. KLONOPIN [Concomitant]
  3. TRILEPTAL [Concomitant]
  4. MIRAPEX [Concomitant]
  5. DEPAKOTE [Concomitant]
  6. WELLBUTRIN [Concomitant]

REACTIONS (4)
  - VITILIGO [None]
  - GLARE [None]
  - HALO VISION [None]
  - VISUAL IMPAIRMENT [None]
